FAERS Safety Report 4512114-6 (Version None)
Quarter: 2004Q4

REPORT INFORMATION
  Report Type: 
  Country: None (occurrence: None)
  Receive Date: 20041129
  Receipt Date: 20041110
  Transmission Date: 20050328
  Serious: Yes (Hospitalization)
  Sender: FDA-Public Use
  Company Number: DE-ROCHE-385790

PATIENT
  Age: 56 Year
  Sex: Male

DRUGS (25)
  1. MYCOPHENOLATE MOFETIL [Suspect]
     Route: 048
     Dates: start: 20040829, end: 20041109
  2. MYCOPHENOLATE MOFETIL [Suspect]
     Route: 048
     Dates: start: 20041115, end: 20041120
  3. MYCOPHENOLATE MOFETIL [Suspect]
     Route: 048
     Dates: start: 20041120
  4. DACLIZUMAB [Suspect]
     Route: 042
     Dates: start: 20040829, end: 20040829
  5. DACLIZUMAB [Suspect]
     Dosage: DOSE 80-85 MG
     Route: 042
     Dates: start: 20040910, end: 20041022
  6. SIROLIMUS [Suspect]
     Route: 048
     Dates: start: 20040829, end: 20040908
  7. SIROLIMUS [Suspect]
     Route: 048
     Dates: start: 20040910
  8. PREDNISOLONE [Suspect]
     Route: 042
     Dates: start: 20040829, end: 20040829
  9. PREDNISOLONE [Suspect]
     Route: 042
     Dates: start: 20040830, end: 20040830
  10. PREDNISOLONE [Suspect]
     Route: 048
     Dates: start: 20040830
  11. ACTONEL [Concomitant]
     Dates: start: 20040904
  12. ACTRAPHANE [Concomitant]
     Route: 058
     Dates: start: 20041007
  13. ACTRAPID [Concomitant]
     Route: 058
     Dates: start: 20040831
  14. AMPHOTERICIN B [Concomitant]
     Dates: start: 20040830
  15. CEFUROXIM [Concomitant]
     Dates: start: 20041014, end: 20041119
  16. FLUVASTATIN [Concomitant]
     Dates: start: 20040922, end: 20040929
  17. SULFAMETHOXAZOLE AND TRIMETHOPRIM [Concomitant]
     Dates: start: 20040830
  18. MADOPAR [Concomitant]
     Dates: start: 20030615, end: 20040914
  19. METOPROLOL [Concomitant]
     Dates: start: 20040929
  20. PRAVASTATIN [Concomitant]
     Dates: start: 20040929
  21. RAMIPRIL [Concomitant]
     Route: 048
     Dates: start: 20040904
  22. REPAGLINID [Concomitant]
     Dates: start: 20040911
  23. TORSEMIDE [Concomitant]
     Dates: start: 20040903, end: 20040907
  24. UNACID PD [Concomitant]
     Dates: start: 20040830, end: 20040907
  25. MOXIFLOXACIN HCL [Concomitant]
     Dates: start: 20041109, end: 20041119

REACTIONS (2)
  - INTERSTITIAL LUNG DISEASE [None]
  - PHLEBOTHROMBOSIS [None]
